FAERS Safety Report 14559650 (Version 2)
Quarter: 2018Q4

REPORT INFORMATION
  Report Type: Spontaneous
  Country: US (occurrence: US)
  Receive Date: 20180221
  Receipt Date: 20181018
  Transmission Date: 20190204
  Serious: Yes (Other)
  Sender: FDA-Public Use
  Company Number: US-SA-2018SA044017

PATIENT
  Age: 48 Year
  Sex: Female

DRUGS (2)
  1. LANTUS [Suspect]
     Active Substance: INSULIN GLARGINE
     Dosage: 32 U, QD
     Dates: start: 201712
  2. LANTUS [Suspect]
     Active Substance: INSULIN GLARGINE
     Indication: TYPE 2 DIABETES MELLITUS
     Dosage: 28 DF,QD
     Route: 051

REACTIONS (2)
  - Schizophrenia [Unknown]
  - Device operational issue [Unknown]
